FAERS Safety Report 11875778 (Version 1)
Quarter: 2015Q4

REPORT INFORMATION
  Report Type: Report from Study
  Country: US (occurrence: US)
  Receive Date: 20151229
  Receipt Date: 20151229
  Transmission Date: 20160305
  Serious: Yes (Other)
  Sender: FDA-Public Use
  Company Number: US-009507513-1512USA013053

PATIENT
  Age: 66 Year
  Sex: Female

DRUGS (19)
  1. FUROSEMIDE. [Concomitant]
     Active Substance: FUROSEMIDE
  2. ALBUTEROL. [Concomitant]
     Active Substance: ALBUTEROL
  3. TRAMADOL HYDROCHLORIDE. [Concomitant]
     Active Substance: TRAMADOL HYDROCHLORIDE
  4. TUDORZA PRESSAIR [Concomitant]
     Active Substance: ACLIDINIUM BROMIDE
  5. SERTRALINE HYDROCHLORIDE. [Concomitant]
     Active Substance: SERTRALINE HYDROCHLORIDE
  6. PANTOPRAZOLE [Concomitant]
     Active Substance: PANTOPRAZOLE SODIUM
  7. COZAAR [Suspect]
     Active Substance: LOSARTAN POTASSIUM
     Indication: PRODUCT USED FOR UNKNOWN INDICATION
     Dosage: UNK
     Route: 048
     Dates: end: 201511
  8. AMBRISENTAN [Suspect]
     Active Substance: AMBRISENTAN
     Indication: PULMONARY HYPERTENSION
     Dosage: 5 MG, QD
     Route: 048
     Dates: start: 20150330, end: 20151104
  9. MODAFINIL. [Concomitant]
     Active Substance: MODAFINIL
  10. METFORMIN [Concomitant]
     Active Substance: METFORMIN HYDROCHLORIDE
  11. VOLTAREN [Concomitant]
     Active Substance: DICLOFENAC SODIUM
  12. ATORVASTATIN [Concomitant]
     Active Substance: ATORVASTATIN
  13. VALIUM [Concomitant]
     Active Substance: DIAZEPAM
  14. ORTHOVISC [Concomitant]
     Active Substance: HYALURONIC ACID
  15. SINGULAIR [Concomitant]
     Active Substance: MONTELUKAST SODIUM
  16. ADEMPAS [Suspect]
     Active Substance: RIOCIGUAT
     Indication: PULMONARY HYPERTENSION
     Dosage: 2 MG, TID
  17. VERAPAMIL [Concomitant]
     Active Substance: VERAPAMIL HYDROCHLORIDE
  18. HYDROCODONE [Concomitant]
     Active Substance: HYDROCODONE
  19. COUMADIN [Concomitant]
     Active Substance: WARFARIN SODIUM

REACTIONS (5)
  - Blood pressure diastolic decreased [Unknown]
  - Fatigue [Recovering/Resolving]
  - Gastroenteritis viral [Recovered/Resolved]
  - Hypotension [Not Recovered/Not Resolved]
  - Cataract [Unknown]

NARRATIVE: CASE EVENT DATE: 20151104
